FAERS Safety Report 11830393 (Version 4)
Quarter: 2016Q3

REPORT INFORMATION
  Report Type: Spontaneous
  Country: US (occurrence: US)
  Receive Date: 20151214
  Receipt Date: 20160907
  Transmission Date: 20161109
  Serious: Yes (Other)
  Sender: FDA-Public Use
  Company Number: US-JNJFOC-20151201114

PATIENT
  Age: 48 Year
  Sex: Male

DRUGS (5)
  1. CIPROFLOXACIN. [Suspect]
     Active Substance: CIPROFLOXACIN
     Indication: PRODUCT USED FOR UNKNOWN INDICATION
     Route: 065
     Dates: start: 20040302
  2. LEVAQUIN [Suspect]
     Active Substance: LEVOFLOXACIN
     Indication: ABSCESS
     Route: 048
     Dates: start: 200505
  3. LEVAQUIN [Suspect]
     Active Substance: LEVOFLOXACIN
     Indication: ABSCESS
     Route: 042
     Dates: start: 20050324
  4. LEVAQUIN [Suspect]
     Active Substance: LEVOFLOXACIN
     Indication: ABSCESS
     Dosage: 30 DAYS
     Route: 048
     Dates: start: 20050416
  5. LEVAQUIN [Suspect]
     Active Substance: LEVOFLOXACIN
     Indication: ABSCESS
     Dosage: 30 DAYS
     Route: 048
     Dates: start: 20050415

REACTIONS (1)
  - Neuropathy peripheral [Not Recovered/Not Resolved]

NARRATIVE: CASE EVENT DATE: 200505
